FAERS Safety Report 5551114-4 (Version None)
Quarter: 2007Q4

REPORT INFORMATION
  Report Type: 
  Country: None (occurrence: None)
  Receive Date: 20071212
  Receipt Date: 20071205
  Transmission Date: 20080405
  Serious: Yes (Other)
  Sender: FDA-Public Use
  Company Number: B0491078A

PATIENT
  Age: 6 Week
  Sex: Female
  Weight: 4.1 kg

DRUGS (6)
  1. COMBIVIR [Suspect]
     Indication: ANTIVIRAL PROPHYLAXIS
     Dosage: 1TAB TWICE PER DAY
  2. LOPINAVIR AND RITONAVIR [Suspect]
     Indication: ANTIVIRAL PROPHYLAXIS
     Dosage: 2TAB TWICE PER DAY
  3. ZIDOVUDINE [Suspect]
     Indication: ANTIVIRAL PROPHYLAXIS
     Route: 048
     Dates: start: 20070727
  4. LAMIVUDINE [Suspect]
     Indication: ANTIVIRAL PROPHYLAXIS
     Route: 048
     Dates: start: 20070727
  5. NEVIRAPINE [Suspect]
     Indication: ANTIVIRAL PROPHYLAXIS
     Route: 048
     Dates: start: 20070727, end: 20070727
  6. NEVIRAPINE [Suspect]
     Dates: start: 20070727, end: 20070727

REACTIONS (1)
  - ALANINE AMINOTRANSFERASE INCREASED [None]
